FAERS Safety Report 8299780-7 (Version None)
Quarter: 2012Q2

REPORT INFORMATION
  Report Type: 
  Country: None (occurrence: None)
  Receive Date: 20120419
  Receipt Date: 20120419
  Transmission Date: 20120825
  Serious: Yes (Hospitalization)
  Sender: FDA-Public Use
  Company Number: None

PATIENT
  Sex: Female
  Weight: 52.9 kg

DRUGS (4)
  1. METFORMIN HCL [Concomitant]
     Route: 048
  2. MEMANTINE HCL [Concomitant]
  3. YERVOY [Suspect]
     Indication: MALIGNANT MELANOMA STAGE IV
     Dosage: 176 MG
     Route: 042
     Dates: start: 20120119, end: 20120209
  4. DONEPEZIL HCL [Concomitant]
     Route: 048

REACTIONS (2)
  - DIARRHOEA [None]
  - GASTROINTESTINAL HAEMORRHAGE [None]
